FAERS Safety Report 14721150 (Version 3)
Quarter: 2018Q3

REPORT INFORMATION
  Report Type: Report from Study
  Country: US (occurrence: US)
  Receive Date: 20180405
  Receipt Date: 20180726
  Transmission Date: 20181010
  Serious: No
  Sender: FDA-Public Use
  Company Number: PHEH2018US013037

PATIENT
  Sex: Female

DRUGS (5)
  1. ENTRESTO [Suspect]
     Active Substance: SACUBITRIL\VALSARTAN
     Dosage: (SACUBITRIL 49/VALSARTAN51)
     Route: 048
  2. ENTRESTO [Suspect]
     Active Substance: SACUBITRIL\VALSARTAN
     Indication: PRODUCT USED FOR UNKNOWN INDICATION
     Dosage: (SACUBITRIL 24/VALSARTAN26) BID
     Route: 048
  3. WARFARIN [Concomitant]
     Active Substance: WARFARIN
     Indication: PRODUCT USED FOR UNKNOWN INDICATION
     Dosage: 1 DF, QD
     Route: 065
  4. ENTRESTO [Suspect]
     Active Substance: SACUBITRIL\VALSARTAN
     Dosage: (SACUBITRIL 24/VALSARTAN26), BID
     Route: 065
  5. FUROSEMIDE. [Concomitant]
     Active Substance: FUROSEMIDE
     Indication: PRODUCT USED FOR UNKNOWN INDICATION
     Dosage: 20 ML, EVERY OTHER DAY
     Route: 065

REACTIONS (8)
  - Inappropriate schedule of drug administration [Unknown]
  - Dysphonia [Unknown]
  - Aphonia [Unknown]
  - Drug prescribing error [Unknown]
  - Prescribed underdose [Unknown]
  - Hypotension [Unknown]
  - Dizziness [Unknown]
  - Hypertension [Unknown]
